FAERS Safety Report 4797380-4 (Version None)
Quarter: 2005Q4

REPORT INFORMATION
  Report Type: 
  Country: None (occurrence: None)
  Receive Date: 20051013
  Receipt Date: 20051004
  Transmission Date: 20060501
  Serious: Yes (Death)
  Sender: FDA-Public Use
  Company Number: US-JNJFOC-20050902571

PATIENT
  Age: 47 Year
  Sex: Male

DRUGS (3)
  1. ASPIRIN [Suspect]
     Route: 048
  2. BENZODIAZEPINE [Suspect]
     Route: 048
  3. BARBITURATE [Suspect]
     Route: 048

REACTIONS (10)
  - BLOOD BICARBONATE DECREASED [None]
  - CARDIAC ARREST [None]
  - COMPLETED SUICIDE [None]
  - DEPRESSED LEVEL OF CONSCIOUSNESS [None]
  - HEART RATE INCREASED [None]
  - HYPOXIA [None]
  - INTENTIONAL DRUG MISUSE [None]
  - PCO2 DECREASED [None]
  - PO2 INCREASED [None]
  - URINE OUTPUT DECREASED [None]
